FAERS Safety Report 15647496 (Version 2)
Quarter: 2019Q1

REPORT INFORMATION
  Report Type: Spontaneous
  Country: US (occurrence: US)
  Receive Date: 20181122
  Receipt Date: 20190201
  Transmission Date: 20190417
  Serious: No
  Sender: FDA-Public Use
  Company Number: US-ASTRAZENECA-2014SE73527

PATIENT
  Age: 63 Year
  Sex: Female
  Weight: 200 kg

DRUGS (8)
  1. GLYBURIDE. [Concomitant]
     Active Substance: GLYBURIDE
     Indication: DIABETES MELLITUS
  2. BYETTA [Suspect]
     Active Substance: EXENATIDE
     Indication: TYPE 2 DIABETES MELLITUS
     Route: 058
     Dates: start: 2014
  3. BYETTA [Suspect]
     Active Substance: EXENATIDE
     Indication: TYPE 2 DIABETES MELLITUS
     Dosage: 250 MCG / 1.2 ML PEN - BMS
     Route: 058
  4. ATENOLOL. [Concomitant]
     Active Substance: ATENOLOL
     Indication: HYPERTENSION
  5. GLUCOPHAGE [Concomitant]
     Active Substance: METFORMIN HYDROCHLORIDE
     Indication: DIABETES MELLITUS
  6. HERBAL NOS [Concomitant]
     Active Substance: HERBALS
  7. METFORMIN [Concomitant]
     Active Substance: METFORMIN HYDROCHLORIDE
  8. CLONIDINE. [Concomitant]
     Active Substance: CLONIDINE
     Indication: HYPERTENSION

REACTIONS (13)
  - Glycosylated haemoglobin decreased [Unknown]
  - Product dose omission [Unknown]
  - Blood glucose decreased [Unknown]
  - Sinus disorder [Unknown]
  - Blood glucose fluctuation [Unknown]
  - Malaise [Unknown]
  - Renal impairment [Unknown]
  - Blood glucose increased [Unknown]
  - Circumstance or information capable of leading to medication error [Unknown]
  - Weight decreased [Unknown]
  - Memory impairment [Unknown]
  - Feeling abnormal [Unknown]
  - Pain [Unknown]

NARRATIVE: CASE EVENT DATE: 2014
